FAERS Safety Report 17894399 (Version 1)
Quarter: 2020Q2

REPORT INFORMATION
  Report Type: Report from Study
  Country: JP (occurrence: JP)
  Receive Date: 20200615
  Receipt Date: 20200615
  Transmission Date: 20200714
  Serious: Yes (Death, Hospitalization, Other)
  Sender: FDA-Public Use
  Company Number: PHHY2011JP123438

PATIENT
  Age: 88 Year
  Sex: Female
  Weight: 48 kg

DRUGS (29)
  1. BONZOL [Suspect]
     Active Substance: LANSOPRAZOLE
     Indication: IMMUNE THROMBOCYTOPENIA
     Dosage: 200 MG
     Route: 048
  2. CHINESE MEDICINE [Concomitant]
     Active Substance: UNSPECIFIED INGREDIENT
     Indication: PRODUCT USED FOR UNKNOWN INDICATION
     Dosage: 2.5 G
     Route: 048
     Dates: end: 20111103
  3. REVOLADE TAB [Suspect]
     Active Substance: ELTROMBOPAG
     Dosage: 12.5 MG, TIW
     Route: 048
     Dates: start: 20111114, end: 20120116
  4. METILDIGOXIN [Concomitant]
     Active Substance: METILDIGOXIN
     Indication: PRODUCT USED FOR UNKNOWN INDICATION
     Dosage: 0.05 MG
     Route: 048
  5. NORMONAL [Concomitant]
     Indication: PRODUCT USED FOR UNKNOWN INDICATION
     Dosage: 30 MG
     Route: 048
     Dates: end: 20120811
  6. LENDORMIN [Concomitant]
     Active Substance: BROTIZOLAM
     Dosage: 0.25 MG
     Route: 048
     Dates: start: 20120710, end: 20120811
  7. TAKEPRON [Concomitant]
     Active Substance: LANSOPRAZOLE
     Indication: PROPHYLAXIS
     Dosage: 30 MG
     Route: 048
     Dates: end: 20120709
  8. WARFARIN [Suspect]
     Active Substance: WARFARIN
     Indication: IMMUNE THROMBOCYTOPENIA
     Dosage: 5 MG
     Route: 048
     Dates: start: 20111105, end: 20111106
  9. PREDNISOLONE. [Concomitant]
     Active Substance: PREDNISOLONE
     Dosage: 1 MG
     Route: 048
     Dates: start: 20120621, end: 20120811
  10. MUCODYNE [Concomitant]
     Active Substance: CARBOCYSTEINE
     Dosage: 500 MG
     Route: 048
     Dates: end: 20120811
  11. WARFARIN [Suspect]
     Active Substance: WARFARIN
     Dosage: 2 MG
     Route: 048
     Dates: start: 20111115
  12. PREDNISOLONE. [Concomitant]
     Active Substance: PREDNISOLONE
     Dosage: 2 MG
     Route: 048
     Dates: start: 20120523, end: 20120620
  13. ALDACTONE A [Concomitant]
     Active Substance: SPIRONOLACTONE
     Indication: PRODUCT USED FOR UNKNOWN INDICATION
     Dosage: 25 MG
     Route: 048
     Dates: end: 20120811
  14. FUROSEMIDE. [Concomitant]
     Active Substance: FUROSEMIDE
     Indication: PRODUCT USED FOR UNKNOWN INDICATION
     Dosage: 40 MG
     Route: 048
     Dates: end: 20120811
  15. HEPARIN [Concomitant]
     Active Substance: HEPARIN SODIUM
     Dosage: UNK
     Route: 065
     Dates: start: 20120627, end: 20120704
  16. REVOLADE TAB [Suspect]
     Active Substance: ELTROMBOPAG
     Dosage: 12.5 MG, QW
     Route: 048
     Dates: start: 20120625, end: 20120811
  17. PREDNISOLONE. [Concomitant]
     Active Substance: PREDNISOLONE
     Indication: IMMUNE THROMBOCYTOPENIA
     Dosage: 2.5 MG
     Route: 048
  18. MUCODYNE [Concomitant]
     Active Substance: CARBOCYSTEINE
     Indication: PRODUCT USED FOR UNKNOWN INDICATION
     Dosage: 1500 MG
     Route: 048
  19. LENDORMIN [Concomitant]
     Active Substance: BROTIZOLAM
     Indication: PROPHYLAXIS
     Dosage: 0.125 MG
     Route: 048
     Dates: start: 20111129, end: 20120709
  20. BAYCARON [Concomitant]
     Active Substance: MEFRUSIDE
     Indication: PRODUCT USED FOR UNKNOWN INDICATION
     Dosage: 25 MG
     Route: 048
     Dates: start: 20111111, end: 20120811
  21. MUCOSOLVAN [Concomitant]
     Active Substance: AMBROXOL HYDROCHLORIDE
     Indication: PRODUCT USED FOR UNKNOWN INDICATION
     Dosage: 45 MG
     Route: 048
     Dates: end: 20120811
  22. METILDIGOXIN [Concomitant]
     Active Substance: METILDIGOXIN
     Dosage: 0.02 MG
     Route: 048
     Dates: start: 20120710, end: 20120811
  23. FERROMIA [Concomitant]
     Active Substance: SODIUM FERROUS CITRATE
     Indication: PRODUCT USED FOR UNKNOWN INDICATION
     Dosage: 50 MG
     Route: 048
     Dates: start: 20111105, end: 20120811
  24. ALLEGRA [Concomitant]
     Active Substance: FEXOFENADINE HYDROCHLORIDE
     Indication: ALLERGY PROPHYLAXIS
     Dosage: 120 MG
     Route: 048
     Dates: end: 20120811
  25. HEPARIN [Concomitant]
     Active Substance: HEPARIN SODIUM
     Indication: PROPHYLAXIS
     Dosage: UNK
     Route: 065
     Dates: start: 20111106, end: 20111106
  26. REVOLADE TAB [Suspect]
     Active Substance: ELTROMBOPAG
     Indication: IMMUNE THROMBOCYTOPENIA
     Dosage: 12.5 MG
     Route: 048
     Dates: start: 20110519, end: 20111113
  27. WARFARIN [Suspect]
     Active Substance: WARFARIN
     Dosage: 2.5 MG
     Route: 048
     Dates: start: 20120509, end: 20120811
  28. MAGMITT [Concomitant]
     Active Substance: MAGNESIUM OXIDE
     Indication: CONSTIPATION PROPHYLAXIS
     Dosage: 990 MG
     Route: 048
     Dates: end: 20120811
  29. OMEPRAL [Concomitant]
     Active Substance: OMEPRAZOLE
     Indication: PRODUCT USED FOR UNKNOWN INDICATION
     Dosage: 20 MG
     Route: 048
     Dates: start: 20120710, end: 20120811

REACTIONS (15)
  - Compression fracture [Not Recovered/Not Resolved]
  - Cardiac failure [Recovering/Resolving]
  - Intracardiac thrombus [Not Recovered/Not Resolved]
  - Cellulitis [Recovered/Resolved]
  - Pruritus [Recovering/Resolving]
  - Faeces discoloured [Recovering/Resolving]
  - Peripheral artery occlusion [Not Recovered/Not Resolved]
  - Liver disorder [Not Recovered/Not Resolved]
  - Asphyxia [Fatal]
  - Hypoaesthesia [Recovered/Resolved]
  - Aspiration [Fatal]
  - Gastrointestinal haemorrhage [Recovering/Resolving]
  - Arterial occlusive disease [Recovered/Resolved]
  - Haemoglobin decreased [Recovering/Resolving]
  - Peripheral arterial occlusive disease [Recovered/Resolved]

NARRATIVE: CASE EVENT DATE: 20110921
